FAERS Safety Report 9325690 (Version 1)
Quarter: 2013Q3

REPORT INFORMATION
  Report Type: Spontaneous
  Country: US (occurrence: None)
  Receive Date: 20130603
  Receipt Date: 20130603
  Transmission Date: 20140515
  Serious: Yes (Other)
  Sender: FDA-Public Use
  Company Number: None

PATIENT
  Age: 21 Year
  Sex: Female
  Weight: 56.8 kg

DRUGS (3)
  1. EXPANDED AUTOLOGOUS POLYCLONALREGULATORY T CELLS [Suspect]
     Indication: TYPE 1 DIABETES MELLITUS
     Dosage: 368X10TO6TH CELLS X1 IV
     Route: 042
     Dates: start: 20130307
  2. HUMALOG [Concomitant]
  3. MIRENA IUD [Concomitant]

REACTIONS (8)
  - Hypoglycaemia [None]
  - Nausea [None]
  - Headache [None]
  - Alcohol use [None]
  - Dizziness [None]
  - Asthenia [None]
  - Tremor [None]
  - Blood glucose increased [None]
